FAERS Safety Report 19185187 (Version 1)
Quarter: 2021Q2

REPORT INFORMATION
  Report Type: Spontaneous
  Country: US (occurrence: US)
  Receive Date: 20210427
  Receipt Date: 20210427
  Transmission Date: 20210717
  Serious: No
  Sender: FDA-Public Use
  Company Number: US-AMGEN-USASP2021060185

PATIENT
  Sex: Female

DRUGS (2)
  1. MVASI [Suspect]
     Active Substance: BEVACIZUMAB-AWWB
     Dosage: 475 MILLIGRAM
     Route: 065
     Dates: start: 20191219
  2. MVASI [Suspect]
     Active Substance: BEVACIZUMAB-AWWB
     Indication: FALLOPIAN TUBE CANCER
     Dosage: 475 MILLIGRAM
     Route: 065

REACTIONS (1)
  - Hypertension [Unknown]
